FAERS Safety Report 15285655 (Version 2)
Quarter: 2018Q3

REPORT INFORMATION
  Report Type: Spontaneous
  Country: DE (occurrence: DE)
  Receive Date: 20180816
  Receipt Date: 20180829
  Transmission Date: 20181010
  Serious: Yes (Hospitalization)
  Sender: FDA-Public Use
  Company Number: DE-TEVA-2018-DE-928259

PATIENT
  Age: 68 Year
  Sex: Male

DRUGS (14)
  1. SPIRONOLACTON AL 50 [Concomitant]
  2. JODID 200 HEXAL MG [Concomitant]
  3. ENALAPRIL VITABALANS 20 MG [Concomitant]
  4. APIDRA [Concomitant]
     Active Substance: INSULIN GLULISINE
     Dosage: IN THE MORNING
  5. CARVEDILOL ATID 25 MG [Concomitant]
  6. ASS STADA 100MG [Concomitant]
  7. JARDIANCE [Concomitant]
     Active Substance: EMPAGLIFLOZIN
  8. LANTUS [Concomitant]
     Active Substance: INSULIN GLARGINE
     Dosage: IN THE EVENING
  9. GABAPENTIN. [Suspect]
     Active Substance: GABAPENTIN
     Route: 048
  10. EDARBI 80 MG [Concomitant]
  11. CARVEDILOL ATID 6,25MG [Concomitant]
  12. OMEPRAZOL?RATIOPHARM NT [Concomitant]
  13. NEPRESOL 25 MG [Concomitant]
  14. LERCANIDIPIN HEUMANN 20 MG [Concomitant]

REACTIONS (2)
  - Pain of skin [Unknown]
  - Subdural haematoma [Unknown]

NARRATIVE: CASE EVENT DATE: 201806
